FAERS Safety Report 9819760 (Version 3)
Quarter: 2014Q1

REPORT INFORMATION
  Report Type: Report from Study
  Country: US (occurrence: US)
  Receive Date: 20140116
  Receipt Date: 20140219
  Transmission Date: 20141002
  Serious: Yes (Other)
  Sender: FDA-Public Use
  Company Number: US-009507513-1401USA005130

PATIENT
  Sex: 0

DRUGS (4)
  1. DEXAMETHASONE [Suspect]
     Indication: PROPHYLAXIS
     Dosage: 0.15 MG/KG, QD
  2. DEXAMETHASONE [Suspect]
     Dosage: 0.1 MG/KG, QD
  3. DEXAMETHASONE [Suspect]
     Dosage: 0.05 MG/KG, QD
  4. DEXAMETHASONE [Suspect]
     Dosage: 0.02 MG/KG, QD

REACTIONS (1)
  - Gastrointestinal perforation [Unknown]
